FAERS Safety Report 12167979 (Version 2)
Quarter: 2016Q1

REPORT INFORMATION
  Report Type: Spontaneous
  Country: FR (occurrence: FR)
  Receive Date: 20160310
  Receipt Date: 20160310
  Transmission Date: 20160526
  Serious: Yes (Hospitalization)
  Sender: FDA-Public Use
  Company Number: FR-WATSON-2016-05189

PATIENT
  Age: 72 Year
  Sex: Male

DRUGS (2)
  1. RAPAFLO [Suspect]
     Active Substance: SILODOSIN
     Indication: BENIGN PROSTATIC HYPERPLASIA
     Dosage: 1 DF, DAILY
     Route: 048
     Dates: start: 20150325
  2. VOLTARENE                          /00372303/ [Concomitant]
     Indication: PRODUCT USED FOR UNKNOWN INDICATION
     Dosage: UNK, PRN
     Route: 048

REACTIONS (3)
  - Epistaxis [Recovered/Resolved]
  - Dry mouth [Recovered/Resolved]
  - Sjogren^s syndrome [Recovered/Resolved]

NARRATIVE: CASE EVENT DATE: 20151204
